FAERS Safety Report 8115792-8 (Version None)
Quarter: 2011Q4

REPORT INFORMATION
  Report Type: 
  Country: None (occurrence: None)
  Receive Date: 20111227
  Receipt Date: 20110922
  Transmission Date: 20120403
  Serious: Yes (Other)
  Sender: FDA-Public Use
  Company Number: PHHY2011US04543

PATIENT
  Age: 51 Year
  Sex: Female

DRUGS (4)
  1. GILENYA [Suspect]
     Indication: MULTIPLE SCLEROSIS RELAPSE
     Dosage: 0.5 MG, QD, ORAL, HALF DOSE, DAILY, 0.5 MG, DAILY
     Route: 048
     Dates: start: 20101129
  2. NEURONTIN [Concomitant]
  3. AMBIEN [Concomitant]
  4. IBUPROFEN [Concomitant]

REACTIONS (1)
  - DYSPNOEA [None]
